FAERS Safety Report 8297339-9 (Version None)
Quarter: 2012Q2

REPORT INFORMATION
  Report Type: 
  Country: None (occurrence: None)
  Receive Date: 20120419
  Receipt Date: 20120413
  Transmission Date: 20120825
  Serious: Yes (Life-Threatening, Hospitalization, Other)
  Sender: FDA-Public Use
  Company Number: IL-SANOFI-AVENTIS-2011SA078958

PATIENT
  Age: 62 Year
  Sex: Male

DRUGS (50)
  1. ASPIRIN [Concomitant]
     Dates: start: 20110924
  2. TRAMADEX [Concomitant]
     Dates: start: 20120207, end: 20120207
  3. SOLU-MEDROL [Concomitant]
     Dosage: THERAPY END DATE: 10 FEB 2012
     Dates: start: 20120208, end: 20120210
  4. BISOPROLOL FUMARATE [Concomitant]
  5. PLAVIX [Suspect]
     Route: 065
     Dates: end: 20110704
  6. BETA BLOCKING AGENTS [Concomitant]
     Dosage: FIRST REPORTED ON 22 DECEMBER2010
     Dates: start: 20101222
  7. PLATELET AGGREGATION INHIBITORS [Concomitant]
     Dosage: FIRST REPORTED ON 04 JULY 2011
     Dates: start: 20110327
  8. HMG COA REDUCTASE INHIBITORS [Concomitant]
     Dates: start: 20110704
  9. ANTITHROMBOTIC AGENTS [Concomitant]
     Dosage: FIRST REPORTED ON22 DEC 2010
     Dates: start: 20110327
  10. ANTITHROMBOTIC AGENTS [Concomitant]
     Dates: start: 20101222
  11. ALDOSTERONE [Concomitant]
     Dosage: FIRST REPORTED ON 27 MARCH 2011
     Dates: start: 20110704
  12. SIMVASTATIN [Concomitant]
     Dosage: FIRST REPORTED ON 27 MARCH 2011
     Dates: end: 20110925
  13. DIURETICS [Concomitant]
     Dosage: FIRST REPORTED ON 04 JULY 2011
     Dates: start: 20110327
  14. DIURETICS [Concomitant]
     Dosage: FIRST REPORTED ON 27 MARCH 2011
     Dates: start: 20110704
  15. ACE INHIBITOR NOS [Concomitant]
     Dosage: FIRST REPORTED ON 22 DECEMBER 2010
     Dates: start: 20111222
  16. PLAVIX [Suspect]
     Route: 065
     Dates: start: 20101222
  17. PLAVIX [Suspect]
     Route: 065
     Dates: start: 20111128
  18. LANTUS [Concomitant]
  19. CIPRODEX [Concomitant]
     Dates: start: 20111024, end: 20111102
  20. OMEPRADEX [Concomitant]
     Dates: start: 20111002
  21. ANTITHROMBOTIC AGENTS [Concomitant]
     Dosage: FIRST REPORTED ON 04 JULY 2011
     Dates: start: 20110704
  22. DIURETICS [Concomitant]
     Dosage: FIRST REPORTED ON 22 DECEMBER2010
     Dates: start: 20101222
  23. ALDOSTERONE [Concomitant]
     Dosage: FIRST REPORTED ON 22 DECEMBER 2010
     Dates: start: 20101222
  24. PLATELET AGGREGATION INHIBITORS [Concomitant]
     Dosage: FIRST REPORTED ON 27 MARCH 2011
     Dates: start: 20110704
  25. APIDRA [Concomitant]
  26. COUMADIN [Concomitant]
     Dates: end: 20110922
  27. OPTALGIN [Concomitant]
     Dosage: THERPAY END DATE: 10 FEB 2012
     Dates: start: 20120202, end: 20120210
  28. FERROCAL [Concomitant]
     Dates: start: 20111021
  29. RAMIPRIL [Concomitant]
  30. SIMVASTATIN [Concomitant]
     Dosage: FIRST REPORTED ON 22 DECEMBER 2010
     Dates: end: 20110925
  31. BETA BLOCKING AGENTS [Concomitant]
     Dosage: FIRST REPORTED ON 04 JULY 2011
     Dates: start: 20110327
  32. ALL OTHER THERAPEUTIC PRODUCTS [Concomitant]
     Dosage: FIRST REPORTED ON 22 DECEMBER 2010
     Dates: start: 20111222
  33. ACE INHIBITOR NOS [Concomitant]
     Dosage: FIRST REPORTED ON 04 JULY 2011
     Dates: start: 20110704
  34. HMG COA REDUCTASE INHIBITORS [Concomitant]
     Dates: start: 20110327
  35. PLAVIX [Suspect]
     Route: 065
     Dates: start: 20110327
  36. ROCEPHIN [Concomitant]
     Dates: start: 20110929, end: 20111006
  37. RULID [Concomitant]
     Dates: start: 20110922, end: 20111010
  38. CEFUROXIME [Concomitant]
     Dates: start: 20111007, end: 20111010
  39. AEROVENT [Concomitant]
     Dates: start: 20110929
  40. ALDOSTERONE [Concomitant]
     Dosage: FIRST REPORTED ON 04 JULY 2011
     Dates: start: 20110327
  41. ACE INHIBITOR NOS [Concomitant]
     Dates: start: 20110327
  42. ZINACEF /UNK/ [Concomitant]
     Dates: start: 20110923, end: 20110929
  43. NYSTATIN [Concomitant]
     Dosage: THERAPY END DATE: 16 FEB 2012
     Dates: start: 20120209, end: 20120216
  44. AMIKACIN [Concomitant]
     Dates: start: 20111021, end: 20111023
  45. SIMVASTATIN [Concomitant]
     Dosage: FIRST REPORTED ON 04 JULY 2011
     Dates: end: 20110925
  46. LIPITOR [Concomitant]
     Dates: start: 20110926
  47. BEZALIP [Concomitant]
     Dates: start: 20110926
  48. BETA BLOCKING AGENTS [Concomitant]
     Dosage: FIRST REPORTED ON 27 MARCH 2011
     Dates: start: 20110704
  49. PLATELET AGGREGATION INHIBITORS [Concomitant]
     Dosage: FIRST REPORTED ON 22 DECEMBER2010
     Dates: start: 20101222
  50. HMG COA REDUCTASE INHIBITORS [Concomitant]
     Dosage: FIRST REPORTED ON 22 DECEMBER 2010
     Dates: start: 20101222

REACTIONS (16)
  - PNEUMONIA [None]
  - WEGENER'S GRANULOMATOSIS [None]
  - DYSPNOEA [None]
  - COUGH [None]
  - ACUTE RESPIRATORY FAILURE [None]
  - SEPSIS [None]
  - MELAENA [None]
  - CARDIAC FAILURE CONGESTIVE [None]
  - HAEMOGLOBIN DECREASED [None]
  - ANAEMIA [None]
  - GASTROINTESTINAL HAEMORRHAGE [None]
  - PYREXIA [None]
  - RENAL FAILURE [None]
  - BLOOD UREA INCREASED [None]
  - MYALGIA [None]
  - HAEMOPTYSIS [None]
